FAERS Safety Report 8687027 (Version 2)
Quarter: 2012Q4

REPORT INFORMATION
  Report Type: 
  Country: US (occurrence: US)
  Receive Date: 20120727
  Receipt Date: 20120829
  Transmission Date: 20130627
  Serious: Yes (Hospitalization)
  Sender: FDA-Public Use
  Company Number: US-CELGENEUS-163-21880-12072499

PATIENT
  Age: 38 None
  Sex: Male
  Weight: 122.5 kg

DRUGS (4)
  1. REVLIMID [Suspect]
     Indication: MULTIPLE MYELOMA
     Dosage: 16.6667 Milligram
     Route: 048
     Dates: start: 20111122
  2. VITAMIN D [Concomitant]
     Indication: HYPOCALCEMIA
     Route: 065
  3. CALCIUM [Concomitant]
     Indication: HYPOCALCEMIA
     Route: 065
  4. FLUIDS [Concomitant]
     Indication: HYPOCALCEMIA
     Route: 041

REACTIONS (1)
  - Hypocalcaemia [Recovered/Resolved]
